FAERS Safety Report 26074269 (Version 1)
Quarter: 2025Q4

REPORT INFORMATION
  Report Type: Spontaneous
  Country: US (occurrence: US)
  Receive Date: 20251121
  Receipt Date: 20251121
  Transmission Date: 20260117
  Serious: Yes (Other)
  Sender: GLENMARK
  Company Number: US-002147023-NVSC2024US234035

PATIENT
  Age: 75 Year

DRUGS (3)
  1. SIROLIMUS [Suspect]
     Active Substance: SIROLIMUS
     Indication: Immunosuppressant drug therapy
     Dosage: UNK
     Route: 065
  2. SIROLIMUS [Suspect]
     Active Substance: SIROLIMUS
     Dosage: UNK (REDUCED DOSE)
     Route: 065
  3. CYCLOSPORINE [Suspect]
     Active Substance: CYCLOSPORINE
     Indication: Immunosuppressant drug therapy
     Dosage: UNK
     Route: 065

REACTIONS (3)
  - Cutaneous T-cell lymphoma [Not Recovered/Not Resolved]
  - Angiocentric lymphoma [Not Recovered/Not Resolved]
  - Epstein-Barr virus associated lymphoma [Not Recovered/Not Resolved]
